FAERS Safety Report 9543530 (Version 1)
Quarter: 2013Q2

REPORT INFORMATION
  Report Type: Spontaneous
  Country: US (occurrence: None)
  Receive Date: 20130524
  Receipt Date: 20130524
  Transmission Date: 20140414
  Serious: No
  Sender: FDA-Public Use
  Company Number: PHEH2013US001652

PATIENT
  Age: 40 Year
  Sex: Male
  Weight: 92.1 kg

DRUGS (1)
  1. GILENYA [Suspect]
     Route: 048

REACTIONS (3)
  - Muscle spasms [None]
  - Pain in extremity [None]
  - Concomitant disease aggravated [None]
